FAERS Safety Report 23501370 (Version 1)
Quarter: 2024Q1

REPORT INFORMATION
  Report Type: Spontaneous
  Country: US (occurrence: US)
  Receive Date: 20240208
  Receipt Date: 20240208
  Transmission Date: 20240410
  Serious: Yes (Hospitalization, Other)
  Sender: FDA-Public Use
  Company Number: US-SA-SAC20240207000982

PATIENT
  Sex: Female
  Weight: 142.8 kg

DRUGS (1)
  1. DUPIXENT [Suspect]
     Active Substance: DUPILUMAB
     Indication: Dermatitis atopic
     Dosage: 300 MG, QOW
     Route: 058

REACTIONS (6)
  - Migraine [Unknown]
  - Unresponsive to stimuli [Unknown]
  - Peripheral swelling [Unknown]
  - Skin discolouration [Unknown]
  - Pain in extremity [Unknown]
  - Rash [Unknown]
